FAERS Safety Report 8567830-6 (Version None)
Quarter: 2012Q3

REPORT INFORMATION
  Report Type: 
  Country: None (occurrence: None)
  Receive Date: 20120803
  Receipt Date: 20120730
  Transmission Date: 20120928
  Serious: Yes (Hospitalization)
  Sender: FDA-Public Use
  Company Number: BE-PFIZER INC-2012185566

PATIENT
  Age: 60 Year
  Sex: Female
  Weight: 106 kg

DRUGS (7)
  1. EZETIMIBE [Concomitant]
     Indication: HYPERCHOLESTEROLAEMIA
     Dosage: UNK
     Dates: start: 20050425
  2. MAGNESIUM [Concomitant]
     Indication: FATIGUE
     Dosage: UNK
     Dates: start: 20040201
  3. NEXIUM [Concomitant]
     Indication: OESOPHAGITIS
     Dosage: UNK
     Dates: start: 20040215
  4. LEVOTHYROXINE SODIUM [Concomitant]
     Indication: PRIMARY HYPOTHYROIDISM
  5. LEVOTHYROXINE SODIUM [Concomitant]
     Indication: BLOOD THYROID STIMULATING HORMONE DECREASED
     Dosage: UNK
     Dates: start: 20040226
  6. GENOTROPIN [Suspect]
     Dosage: 0.5 MG, 1XDAY, 7INJECTIONS/WEEK
     Route: 058
     Dates: start: 20070503
  7. IRBESARTAN [Concomitant]
     Indication: HYPERTENSION
     Dosage: UNK
     Dates: start: 20031002

REACTIONS (1)
  - HIP ARTHROPLASTY [None]
